FAERS Safety Report 8209608-9 (Version None)
Quarter: 2012Q1

REPORT INFORMATION
  Report Type: 
  Country: None (occurrence: None)
  Receive Date: 20120314
  Receipt Date: 20120229
  Transmission Date: 20120608
  Serious: Yes (Other)
  Sender: FDA-Public Use
  Company Number: US-ELI_LILLY_AND_COMPANY-US201112004138

PATIENT
  Sex: Male
  Weight: 58.05 kg

DRUGS (1)
  1. STRATTERA [Suspect]
     Indication: ATTENTION DEFICIT/HYPERACTIVITY DISORDER
     Dosage: 60 MG, QD
     Route: 048
     Dates: start: 20110121, end: 20111004

REACTIONS (3)
  - JAUNDICE [None]
  - OCULAR ICTERUS [None]
  - HEPATIC ENZYME INCREASED [None]
